FAERS Safety Report 24295945 (Version 3)
Quarter: 2025Q3

REPORT INFORMATION
  Report Type: Spontaneous
  Country: GB (occurrence: GB)
  Receive Date: 20240909
  Receipt Date: 20250809
  Transmission Date: 20251020
  Serious: Yes (Hospitalization, Other)
  Sender: ALEXION PHARMACEUTICALS
  Company Number: 2024A201628

PATIENT
  Age: 52 Year
  Sex: Female

DRUGS (1)
  1. TEZSPIRE [Suspect]
     Active Substance: TEZEPELUMAB-EKKO
     Indication: Asthma

REACTIONS (2)
  - Pulmonary embolism [Unknown]
  - Muscle strain [Unknown]

NARRATIVE: CASE EVENT DATE: 20240819
